FAERS Safety Report 6969956-7 (Version None)
Quarter: 2010Q3

REPORT INFORMATION
  Report Type: 
  Country: None (occurrence: None)
  Receive Date: 20100903
  Receipt Date: 20100818
  Transmission Date: 20110219
  Serious: Yes (Other)
  Sender: FDA-Public Use
  Company Number: ACO_01767_2010

PATIENT
  Sex: Female
  Weight: 74.3899 kg

DRUGS (9)
  1. AMPYRA [Suspect]
     Indication: MULTIPLE SCLEROSIS
     Dosage: (10 MG BID ORAL)
     Route: 048
     Dates: start: 20100714, end: 20100731
  2. COPAXONE [Concomitant]
  3. ZOCOR [Concomitant]
  4. LEVOTHYROXINE [Concomitant]
  5. TAMOXIHEN [Concomitant]
  6. VITAMIN D [Concomitant]
  7. FOLIC ACID [Concomitant]
  8. METHOTREXATE [Concomitant]
  9. UNSPECIFIED MEDICATION FOR THE PREVENTION OF CANCER [Concomitant]

REACTIONS (14)
  - CONDITION AGGRAVATED [None]
  - CONVULSION [None]
  - CYSTITIS [None]
  - DIZZINESS [None]
  - FALL [None]
  - FEELING ABNORMAL [None]
  - GAIT DISTURBANCE [None]
  - HEAD INJURY [None]
  - JOINT DISLOCATION [None]
  - MUSCULOSKELETAL STIFFNESS [None]
  - MYALGIA [None]
  - OEDEMA PERIPHERAL [None]
  - RASH PRURITIC [None]
  - VISUAL IMPAIRMENT [None]
